FAERS Safety Report 15513129 (Version 1)
Quarter: 2018Q4

REPORT INFORMATION
  Report Type: Spontaneous
  Country: US (occurrence: US)
  Receive Date: 20181011
  Receipt Date: 20181011
  Transmission Date: 20190205
  Serious: No
  Sender: FDA-Public Use
  Company Number: None

PATIENT
  Age: 39 Year
  Sex: Female

DRUGS (1)
  1. SUTENT [Suspect]
     Active Substance: SUNITINIB MALATE
     Dates: start: 201809

REACTIONS (4)
  - Oral mucosal erythema [None]
  - Stomatitis [None]
  - Nasal discomfort [None]
  - Nasal mucosal disorder [None]

NARRATIVE: CASE EVENT DATE: 20181010
